FAERS Safety Report 8556517-1 (Version None)
Quarter: 2012Q3

REPORT INFORMATION
  Report Type: 
  Country: None (occurrence: None)
  Receive Date: 20120801
  Receipt Date: 20120724
  Transmission Date: 20120928
  Serious: Yes (Hospitalization, Other)
  Sender: FDA-Public Use
  Company Number: BR-ABBOTT-12P-020-0951770-00

PATIENT
  Sex: Female

DRUGS (3)
  1. HUMIRA [Suspect]
     Indication: CROHN'S DISEASE
     Dosage: WEEK 2, 80 MG
  2. MESALAMINE [Concomitant]
     Indication: PRODUCT USED FOR UNKNOWN INDICATION
  3. HUMIRA [Suspect]
     Dosage: WEEK 0, 160 MG

REACTIONS (5)
  - PNEUMOTHORAX [None]
  - CEREBROVASCULAR ACCIDENT [None]
  - DIARRHOEA [None]
  - ASTHENIA [None]
  - MEDICAL INDUCTION OF COMA [None]
